FAERS Safety Report 11559102 (Version 1)
Quarter: 2015Q3

REPORT INFORMATION
  Report Type: Spontaneous
  Country: US (occurrence: None)
  Receive Date: 20150925
  Receipt Date: 20150925
  Transmission Date: 20151125
  Serious: Yes (Other)
  Sender: FDA-Public Use
  Company Number: None

PATIENT
  Age: 61 Year
  Sex: Female
  Weight: 58.06 kg

DRUGS (4)
  1. LORAZEPAM. [Suspect]
     Active Substance: LORAZEPAM
     Indication: ANXIETY
     Dosage: 30 PILLS 1/2 TO 1 DAILY AS NEEDED
     Route: 048
     Dates: start: 20150624, end: 20150704
  2. MULTIVITAMIN [Concomitant]
     Active Substance: VITAMINS
  3. LORAZEPAM. [Suspect]
     Active Substance: LORAZEPAM
     Indication: SLEEP DISORDER
     Dosage: 30 PILLS 1/2 TO 1 DAILY AS NEEDED
     Route: 048
     Dates: start: 20150624, end: 20150704
  4. VITAMIN C [Concomitant]
     Active Substance: ASCORBIC ACID

REACTIONS (6)
  - Insomnia [None]
  - Dyspnoea [None]
  - Abdominal pain upper [None]
  - Chest pain [None]
  - Product substitution issue [None]
  - Restlessness [None]

NARRATIVE: CASE EVENT DATE: 20150705
